FAERS Safety Report 5480490-6 (Version None)
Quarter: 2007Q4

REPORT INFORMATION
  Report Type: 
  Country: None (occurrence: None)
  Receive Date: 20071009
  Receipt Date: 20070928
  Transmission Date: 20080405
  Serious: Yes (Death)
  Sender: FDA-Public Use
  Company Number: GB-ALLERGAN-0710670US

PATIENT
  Sex: Female

DRUGS (7)
  1. TIMOLOL MALEATE [Suspect]
     Indication: GLAUCOMA
     Dosage: UNK, BID
     Route: 047
     Dates: start: 20040101
  2. BETAXOLOL [Suspect]
     Indication: GLAUCOMA
     Route: 047
  3. AD CAL [Concomitant]
     Indication: OSTEOPOROSIS
     Dosage: UNK, UNK
     Route: 048
     Dates: start: 20030101
  4. CANDESARTAN CILEXETIL [Concomitant]
     Indication: CARDIAC FAILURE CONGESTIVE
     Dosage: 4 MG, UNK
     Dates: start: 20030101
  5. CIPROFIBRATE [Concomitant]
     Indication: HYPERCHOLESTEROLAEMIA
     Dates: start: 20030101
  6. FUROSEMIDE [Concomitant]
     Indication: CARDIAC FAILURE CONGESTIVE
     Dosage: 40 MG, UNK
     Dates: start: 20030101
  7. RISEDRONATE SODIUM [Concomitant]
     Indication: OSTEOPOROSIS
     Dates: start: 20040101

REACTIONS (5)
  - ARRHYTHMIA [None]
  - ATRIAL FIBRILLATION [None]
  - DEATH [None]
  - PRESYNCOPE [None]
  - WHEEZING [None]
